FAERS Safety Report 9332552 (Version 1)
Quarter: 2013Q2

REPORT INFORMATION
  Report Type: Spontaneous
  Country: BR (occurrence: BR)
  Receive Date: 20130606
  Receipt Date: 20130606
  Transmission Date: 20140414
  Serious: Yes (Other)
  Sender: FDA-Public Use
  Company Number: BR-JNJFOC-20130522229

PATIENT
  Age: 49 Year
  Sex: Female
  Weight: 65 kg

DRUGS (5)
  1. SIMPONI [Suspect]
     Indication: RHEUMATOID ARTHRITIS
     Route: 058
     Dates: start: 20130424
  2. PURAN T4 [Concomitant]
     Indication: THYROID DISORDER
     Route: 065
     Dates: start: 2011
  3. OMEPRAZOLE [Concomitant]
     Indication: GASTROOESOPHAGEAL REFLUX DISEASE
     Route: 065
     Dates: start: 2011
  4. PREDNISONE [Concomitant]
     Indication: RHEUMATIC DISORDER
     Route: 065
     Dates: start: 2011
  5. LEFLUNOMIDE [Concomitant]
     Indication: RHEUMATIC DISORDER
     Route: 065
     Dates: start: 2011

REACTIONS (5)
  - Erythema [Not Recovered/Not Resolved]
  - Skin burning sensation [Not Recovered/Not Resolved]
  - Skin atrophy [Not Recovered/Not Resolved]
  - Pruritus [Not Recovered/Not Resolved]
  - Blood cholesterol increased [Unknown]
